FAERS Safety Report 24523833 (Version 4)
Quarter: 2024Q4

REPORT INFORMATION
  Report Type: Spontaneous
  Country: US (occurrence: US)
  Receive Date: 20241018
  Receipt Date: 20241210
  Transmission Date: 20250115
  Serious: Yes (Other)
  Sender: RADIUS PHARM
  Company Number: US-RADIUS HEALTH INC.-2024US006270

PATIENT
  Sex: Female

DRUGS (1)
  1. TYMLOS [Suspect]
     Active Substance: ABALOPARATIDE
     Indication: Osteopenia
     Dosage: 80 MICROGRAM, QD
     Route: 058
     Dates: start: 2024

REACTIONS (8)
  - Pulmonary embolism [Unknown]
  - Breast cancer [Unknown]
  - Heart rate irregular [Unknown]
  - Hypotension [Recovering/Resolving]
  - Heart rate increased [Recovered/Resolved]
  - Pain [Unknown]
  - Fatigue [Not Recovered/Not Resolved]
  - Pain in extremity [Unknown]

NARRATIVE: CASE EVENT DATE: 20240101
